FAERS Safety Report 12091453 (Version 9)
Quarter: 2019Q3

REPORT INFORMATION
  Report Type: Spontaneous
  Country: SA (occurrence: SA)
  Receive Date: 20160218
  Receipt Date: 20190916
  Transmission Date: 20191004
  Serious: Yes (Life-Threatening, Hospitalization, Other)
  Sender: FDA-Public Use
  Company Number: PHHY2016SA002036

PATIENT
  Age: 32 Year
  Sex: Female

DRUGS (1)
  1. GILENYA [Suspect]
     Active Substance: FINGOLIMOD HYDROCHLORIDE
     Indication: RELAPSING-REMITTING MULTIPLE SCLEROSIS
     Dosage: 0.5 MG, QD
     Route: 065
     Dates: start: 201206, end: 201601

REACTIONS (26)
  - Insomnia [Unknown]
  - Aphasia [Unknown]
  - Sensory disturbance [Unknown]
  - Immune reconstitution inflammatory syndrome [Recovered/Resolved]
  - Central nervous system lesion [Unknown]
  - Hemianaesthesia [Not Recovered/Not Resolved]
  - Irritability [Unknown]
  - Muscle twitching [Unknown]
  - Disturbance in attention [Unknown]
  - Generalised tonic-clonic seizure [Unknown]
  - Multiple sclerosis relapse [Recovering/Resolving]
  - Hemiparesis [Unknown]
  - Personality change [Unknown]
  - Progressive multifocal leukoencephalopathy [Not Recovered/Not Resolved]
  - Movement disorder [Unknown]
  - Ataxia [Unknown]
  - Headache [Unknown]
  - Abnormal behaviour [Unknown]
  - Muscular weakness [Unknown]
  - Hyperreflexia [Unknown]
  - Dysarthria [Unknown]
  - Cognitive disorder [Unknown]
  - Asthenia [Unknown]
  - Memory impairment [Unknown]
  - Coordination abnormal [Unknown]
  - Hypoaesthesia [Unknown]

NARRATIVE: CASE EVENT DATE: 201510
